FAERS Safety Report 9870718 (Version 2)
Quarter: 2014Q1

REPORT INFORMATION
  Report Type: Report from Study
  Country: DE (occurrence: DE)
  Receive Date: 20140205
  Receipt Date: 20140304
  Transmission Date: 20141002
  Serious: Yes (Hospitalization)
  Sender: FDA-Public Use
  Company Number: DE-ROCHE-1341305

PATIENT
  Age: 50 Year
  Sex: Female

DRUGS (9)
  1. PERTUZUMAB [Suspect]
     Indication: BREAST CANCER METASTATIC
     Dosage: LAST DOSE PRIOR TO SAE ON 08/JAN/2014
     Route: 042
     Dates: start: 20140108
  2. TRASTUZUMAB [Suspect]
     Indication: BREAST CANCER METASTATIC
     Dosage: LAST DOSE PRIOR TO SAE 08/JAN/2014
     Route: 042
     Dates: start: 20140108
  3. DOCETAXEL [Suspect]
     Indication: BREAST CANCER METASTATIC
     Route: 042
     Dates: start: 20131106
  4. DEXAMETHASON [Concomitant]
     Indication: PROPHYLAXIS
     Route: 065
     Dates: start: 20130612
  5. ONDANSETRON [Concomitant]
     Indication: PROPHYLAXIS
     Route: 065
     Dates: start: 20130612
  6. EMEND [Concomitant]
     Indication: PROPHYLAXIS
     Dosage: 125MG/80MG
     Route: 065
     Dates: start: 20130612
  7. EFEROX [Concomitant]
     Route: 065
     Dates: start: 1993
  8. CORTISON [Concomitant]
     Dosage: OINTMENT
     Route: 065
     Dates: start: 20131001, end: 20131016
  9. PHENOXYMETHYLPENICILLIN [Concomitant]
     Dosage: 15 MILLI. IE
     Route: 065
     Dates: start: 20140121, end: 20140127

REACTIONS (1)
  - Erysipelas [Recovered/Resolved]
